FAERS Safety Report 8476753 (Version 6)
Quarter: 2014Q1

REPORT INFORMATION
  Report Type: Report from Study
  Country: US (occurrence: US)
  Receive Date: 20120326
  Receipt Date: 20140321
  Transmission Date: 20141002
  Serious: Yes (Hospitalization, Other)
  Sender: FDA-Public Use
  Company Number: US-ALEXION PHARMACEUTICALS INC.-A201200464

PATIENT
  Age: 79 Year
  Sex: Male
  Weight: 74 kg

DRUGS (2)
  1. SOLIRIS [Suspect]
     Indication: PAROXYSMAL NOCTURNAL HAEMOGLOBINURIA
     Dosage: 600 MG, UNK
     Route: 042
     Dates: start: 20071012
  2. SOLIRIS [Suspect]
     Dosage: 900 MG, Q2W
     Route: 042
     Dates: end: 20120406

REACTIONS (21)
  - Diverticulum [Not Recovered/Not Resolved]
  - Large intestine perforation [Recovered/Resolved]
  - Cerebrovascular accident [Recovered/Resolved]
  - Staphylococcal infection [Recovered/Resolved]
  - Aphasia [Unknown]
  - Haemolysis [Unknown]
  - Blood count abnormal [Not Recovered/Not Resolved]
  - Musculoskeletal stiffness [Unknown]
  - Abdominal pain upper [Unknown]
  - Nasal inflammation [Unknown]
  - Arthropod bite [Unknown]
  - Jaundice [Not Recovered/Not Resolved]
  - Local swelling [Unknown]
  - Chills [Unknown]
  - Vomiting [Unknown]
  - Pyrexia [Unknown]
  - Abdominal pain [Unknown]
  - Faeces discoloured [Unknown]
  - Malaise [Unknown]
  - Pain [Unknown]
  - Pyrexia [Unknown]
